FAERS Safety Report 17900503 (Version 2)
Quarter: 2020Q3

REPORT INFORMATION
  Report Type: Report from Study
  Country: None (occurrence: US)
  Receive Date: 20200616
  Receipt Date: 20200929
  Transmission Date: 20201103
  Serious: Yes (Hospitalization, Other)
  Sender: FDA-Public Use
  Company Number: US-ABBVIE-20K-163-3380270-00

PATIENT
  Age: 57 Year
  Sex: Female

DRUGS (2)
  1. HUMIRA [Suspect]
     Active Substance: ADALIMUMAB
     Indication: RHEUMATOID ARTHRITIS
     Route: 058
     Dates: start: 20200317
  2. PREDNISONE. [Concomitant]
     Active Substance: PREDNISONE
     Indication: PRODUCT USED FOR UNKNOWN INDICATION

REACTIONS (18)
  - Salivary gland calculus [Unknown]
  - Procedural pain [Unknown]
  - Pain [Unknown]
  - Gait disturbance [Not Recovered/Not Resolved]
  - Headache [Unknown]
  - Arthralgia [Not Recovered/Not Resolved]
  - Drug ineffective [Unknown]
  - Salivary duct obstruction [Unknown]
  - Fatigue [Recovered/Resolved]
  - Fibula fracture [Unknown]
  - Sialoadenitis [Unknown]
  - Pain in extremity [Not Recovered/Not Resolved]
  - Headache [Recovered/Resolved]
  - Oesophageal achalasia [Unknown]
  - Musculoskeletal stiffness [Recovering/Resolving]
  - Joint stiffness [Recovering/Resolving]
  - Back pain [Not Recovered/Not Resolved]
  - Neck pain [Not Recovered/Not Resolved]

NARRATIVE: CASE EVENT DATE: 2020
